FAERS Safety Report 16894047 (Version 1)
Quarter: 2019Q4

REPORT INFORMATION
  Report Type: Spontaneous
  Country: JP (occurrence: JP)
  Receive Date: 20191008
  Receipt Date: 20191008
  Transmission Date: 20200122
  Serious: Yes (Other)
  Sender: FDA-Public Use
  Company Number: JP-SA-2019SA272816

PATIENT
  Age: 63 Year
  Sex: Male

DRUGS (1)
  1. AFLIBERCEPT [Suspect]
     Active Substance: AFLIBERCEPT
     Indication: NEOVASCULAR AGE-RELATED MACULAR DEGENERATION
     Dosage: UNK
     Route: 065
     Dates: start: 201704

REACTIONS (4)
  - Macular hole [Recovered/Resolved]
  - Visual field defect [Recovered/Resolved]
  - Vitreous detachment [Recovered/Resolved]
  - Macular fibrosis [Recovered/Resolved]

NARRATIVE: CASE EVENT DATE: 201711
